FAERS Safety Report 7650279-8 (Version None)
Quarter: 2011Q3

REPORT INFORMATION
  Report Type: 
  Country: None (occurrence: None)
  Receive Date: 20110802
  Receipt Date: 20110719
  Transmission Date: 20111222
  Serious: Yes (Hospitalization)
  Sender: FDA-Public Use
  Company Number: US-MYLANLABS-2011S1015317

PATIENT
  Age: 73 Year
  Sex: Female

DRUGS (8)
  1. METOPROLOL TARTRATE [Concomitant]
     Route: 065
  2. WARFARIN SODIUM [Suspect]
     Indication: ANTICOAGULANT THERAPY
     Dosage: RECEIVING A STABLE WARFARIN DOSE
     Route: 065
  3. LISINOPRIL [Concomitant]
     Route: 065
  4. SIMVASTATIN [Concomitant]
     Route: 065
  5. DILTIAZEM [Concomitant]
     Route: 065
  6. CLOPIDOGREL [Suspect]
     Indication: THROMBOSIS PROPHYLAXIS
     Route: 065
  7. GLYBURIDE [Concomitant]
     Route: 065
  8. ASPIRIN [Suspect]
     Indication: ANTICOAGULANT THERAPY
     Route: 065

REACTIONS (2)
  - MUSCLE HAEMORRHAGE [None]
  - NEUROPATHY PERIPHERAL [None]
